FAERS Safety Report 18302190 (Version 3)
Quarter: 2020Q4

REPORT INFORMATION
  Report Type: Spontaneous
  Country: NZ (occurrence: NZ)
  Receive Date: 20200923
  Receipt Date: 20201124
  Transmission Date: 20210113
  Serious: Yes (Other)
  Sender: FDA-Public Use
  Company Number: NZ-MYLANLABS-2020M1081025

PATIENT
  Sex: Male
  Weight: 115 kg

DRUGS (2)
  1. CLOZARIL [Suspect]
     Active Substance: CLOZAPINE
     Indication: PSYCHOTIC DISORDER
  2. CLOZARIL [Suspect]
     Active Substance: CLOZAPINE
     Indication: SCHIZOPHRENIA
     Dosage: 450 MILLIGRAM, PM (2 OF THE SMALL TABLETS AND 2 OF THE BIG TABLETS)
     Route: 048
     Dates: start: 20100927

REACTIONS (3)
  - Drug ineffective [Recovered/Resolved with Sequelae]
  - Schizophrenia [Unknown]
  - Product physical issue [Unknown]
